FAERS Safety Report 6594444-X (Version None)
Quarter: 2010Q1

REPORT INFORMATION
  Report Type: 
  Country: None (occurrence: None)
  Receive Date: 20100222
  Receipt Date: 20100215
  Transmission Date: 20100710
  Serious: Yes (Hospitalization)
  Sender: FDA-Public Use
  Company Number: FR-ASTRAZENECA-2010SE04370

PATIENT
  Age: 54 Year
  Sex: Female

DRUGS (2)
  1. NAROPIN [Suspect]
     Indication: LOCAL ANAESTHESIA
     Dosage: SINGLE ADMINISTRATION
     Route: 053
     Dates: start: 20081202
  2. CLONIDINE HCL [Suspect]
     Indication: LOCAL ANAESTHESIA
     Dosage: SINGLE ADMINISTRATION
     Route: 053
     Dates: start: 20081202

REACTIONS (3)
  - GAIT DISTURBANCE [None]
  - NEUROPATHY PERIPHERAL [None]
  - PAIN IN EXTREMITY [None]
